FAERS Safety Report 13356321 (Version 2)
Quarter: 2017Q2

REPORT INFORMATION
  Report Type: Spontaneous
  Country: AR (occurrence: AR)
  Receive Date: 20170321
  Receipt Date: 20170424
  Transmission Date: 20170830
  Serious: Yes (Other)
  Sender: FDA-Public Use
  Company Number: AR-VIIV HEALTHCARE LIMITED-AR2017GSK035066

PATIENT
  Age: 29 Year
  Sex: Male

DRUGS (1)
  1. TRIUMEQ [Suspect]
     Active Substance: ABACAVIR SULFATE\DOLUTEGRAVIR SODIUM\LAMIVUDINE
     Indication: PRODUCT USED FOR UNKNOWN INDICATION

REACTIONS (9)
  - Rash papular [Recovering/Resolving]
  - Pyrexia [Unknown]
  - Rash maculo-papular [Unknown]
  - Skin necrosis [Unknown]
  - Histoplasmosis [Unknown]
  - Lymphadenopathy [Unknown]
  - Scab [Unknown]
  - Stevens-Johnson syndrome [Unknown]
  - Hepatosplenomegaly [Unknown]
